FAERS Safety Report 7276249-X (Version None)
Quarter: 2011Q1

REPORT INFORMATION
  Report Type: 
  Country: None (occurrence: None)
  Receive Date: 20110204
  Receipt Date: 20110203
  Transmission Date: 20110831
  Serious: Yes (Death)
  Sender: FDA-Public Use
  Company Number: PHHY2011JP06755

PATIENT
  Age: 62 Year
  Sex: Male

DRUGS (4)
  1. MINOCYCLINE HYDROCHLORIDE [Concomitant]
     Indication: PEMPHIGOID
     Dosage: 200 MG
     Route: 048
  2. CYCLOSPORINE [Suspect]
     Indication: PEMPHIGOID
     Dosage: 150 MG/ DAY
     Route: 048
  3. METHYLPREDNISOLONE SODIUM SUCCINATE [Concomitant]
     Indication: PEMPHIGOID
     Dosage: 1 G/ DAY
     Route: 048
  4. NICOTINAMIDE [Concomitant]
     Indication: PEMPHIGOID
     Dosage: 1000 MG
     Route: 048

REACTIONS (4)
  - DEPRESSION [None]
  - ABULIA [None]
  - PNEUMONIA [None]
  - DECREASED APPETITE [None]
